FAERS Safety Report 10310591 (Version 1)
Quarter: 2014Q3

REPORT INFORMATION
  Report Type: Spontaneous
  Country: US (occurrence: None)
  Receive Date: 20140716
  Receipt Date: 20140716
  Transmission Date: 20150326
  Serious: Yes (Life-Threatening)
  Sender: FDA-Public Use
  Company Number: None

PATIENT
  Age: 26 Year
  Sex: Female
  Weight: 80.74 kg

DRUGS (1)
  1. INVEGA SUSTENNA [Suspect]
     Active Substance: PALIPERIDONE PALMITATE
     Indication: SCHIZOPHRENIA
     Dosage: ONCE IN HOSPITAL; INTO THE MUSCLE
     Dates: start: 20140703

REACTIONS (13)
  - Dyspnoea [None]
  - Muscle rigidity [None]
  - Narcolepsy [None]
  - Back pain [None]
  - Muscle spasms [None]
  - Restlessness [None]
  - Panic reaction [None]
  - Drooling [None]
  - Posture abnormal [None]
  - Facial paresis [None]
  - Impaired driving ability [None]
  - Muscle twitching [None]
  - Speech disorder [None]

NARRATIVE: CASE EVENT DATE: 20140715
